FAERS Safety Report 16265953 (Version 4)
Quarter: 2020Q2

REPORT INFORMATION
  Report Type: Spontaneous
  Country: US (occurrence: US)
  Receive Date: 20190502
  Receipt Date: 20200608
  Transmission Date: 20200713
  Serious: No
  Sender: FDA-Public Use
  Company Number: US-ACTELION-A-NJ2019-188948

PATIENT
  Sex: Female
  Weight: 37.19 kg

DRUGS (1)
  1. UPTRAVI [Suspect]
     Active Substance: SELEXIPAG
     Indication: PULMONARY ARTERIAL HYPERTENSION
     Dosage: 600 MCG, BID
     Route: 048

REACTIONS (8)
  - Abdominal discomfort [Unknown]
  - Drug ineffective [Unknown]
  - Ear pain [Recovering/Resolving]
  - Headache [Unknown]
  - Ear discomfort [Recovering/Resolving]
  - Weight decreased [Unknown]
  - Pain in jaw [Unknown]
  - Flushing [Unknown]
